FAERS Safety Report 12994419 (Version 1)
Quarter: 2016Q4

REPORT INFORMATION
  Report Type: Spontaneous
  Country: US (occurrence: US)
  Receive Date: 20161202
  Receipt Date: 20161202
  Transmission Date: 20170207
  Serious: Yes (Other)
  Sender: FDA-Public Use
  Company Number: None

PATIENT
  Age: 59 Year
  Sex: Female
  Weight: 67.5 kg

DRUGS (2)
  1. VITAMIN D [Concomitant]
     Active Substance: CHOLECALCIFEROL
  2. RESTASIS [Suspect]
     Active Substance: CYCLOSPORINE
     Indication: DRY EYE
     Dosage: ?          QUANTITY:0.4 DROP(S);?
     Route: 047
     Dates: start: 20161116, end: 20161202

REACTIONS (11)
  - Anxiety [None]
  - Arthritis [None]
  - Blood pressure increased [None]
  - Insomnia [None]
  - Nervousness [None]
  - Gastrooesophageal reflux disease [None]
  - Headache [None]
  - Blood glucose increased [None]
  - Immune system disorder [None]
  - Upper-airway cough syndrome [None]
  - Abdominal pain upper [None]

NARRATIVE: CASE EVENT DATE: 20161117
